FAERS Safety Report 17340180 (Version 8)
Quarter: 2022Q4

REPORT INFORMATION
  Report Type: Spontaneous
  Country: GB (occurrence: GB)
  Receive Date: 20200129
  Receipt Date: 20221008
  Transmission Date: 20230113
  Serious: Yes (Hospitalization, Other)
  Sender: FDA-Public Use
  Company Number: GXKR2008GB07781

PATIENT
  Age: 55 Year
  Sex: Male

DRUGS (28)
  1. FLUOXETINE [Suspect]
     Active Substance: FLUOXETINE HYDROCHLORIDE
     Indication: Depression
     Dosage: UNK
     Route: 065
  2. LEFLUNOMIDE [Suspect]
     Active Substance: LEFLUNOMIDE
     Indication: Cytomegalovirus viraemia
     Dosage: UNK SYSTEMIC LONG-TERM ANTIVIRAL THERAPY
     Route: 065
  3. LEFLUNOMIDE [Suspect]
     Active Substance: LEFLUNOMIDE
     Indication: Cytomegalovirus infection reactivation
  4. TACROLIMUS [Suspect]
     Active Substance: TACROLIMUS
     Indication: Antiviral treatment
     Dosage: 2 MG Q5D
     Route: 048
  5. TACROLIMUS [Suspect]
     Active Substance: TACROLIMUS
     Indication: Immunosuppressant drug therapy
     Dosage: 4 MG, QD (2 MG TWICE DAILY)
     Route: 048
  6. GANCICLOVIR SODIUM [Suspect]
     Active Substance: GANCICLOVIR SODIUM
     Indication: Cytomegalovirus viraemia
     Dosage: 2.5 MG/KG, QD
     Route: 042
  7. GANCICLOVIR SODIUM [Suspect]
     Active Substance: GANCICLOVIR SODIUM
     Indication: Cytomegalovirus chorioretinitis
     Dosage: 2 MG, QW4 (WEEKLY LEFT EYE INTRAVITREAL GCV (2 MG/0.1 ML) FOR 4 WEEKS)
     Route: 031
  8. GANCICLOVIR SODIUM [Suspect]
     Active Substance: GANCICLOVIR SODIUM
     Dosage: 450 MG, QD WEEKLY LEFT EYE INTRAVITREAL GCV (2 MG/0.1 ML) Q4W
     Route: 048
  9. GANCICLOVIR SODIUM [Suspect]
     Active Substance: GANCICLOVIR SODIUM
     Dosage: 450 UG. QD
     Route: 065
  10. GANCICLOVIR SODIUM [Suspect]
     Active Substance: GANCICLOVIR SODIUM
     Dosage: 7 MG/KG
     Route: 042
  11. VALGANCICLOVIR HYDROCHLORIDE [Suspect]
     Active Substance: VALGANCICLOVIR HYDROCHLORIDE
     Indication: Cytomegalovirus viraemia
     Dosage: 450 MG, QD
     Route: 048
  12. VALGANCICLOVIR HYDROCHLORIDE [Suspect]
     Active Substance: VALGANCICLOVIR HYDROCHLORIDE
     Indication: Cytomegalovirus infection reactivation
     Dosage: 450 UG, QD
     Route: 065
  13. VALGANCICLOVIR HYDROCHLORIDE [Suspect]
     Active Substance: VALGANCICLOVIR HYDROCHLORIDE
     Indication: Prophylaxis
  14. AZATHIOPRINE [Suspect]
     Active Substance: AZATHIOPRINE
     Indication: Immunosuppressant drug therapy
     Dosage: UNK
     Route: 065
  15. CYCLOSPORINE [Suspect]
     Active Substance: CYCLOSPORINE
     Indication: Immunosuppressant drug therapy
     Dosage: UNK
     Route: 065
  16. FOSCARNET SODIUM [Suspect]
     Active Substance: FOSCARNET SODIUM
     Indication: Cytomegalovirus viraemia
     Dosage: UNK
     Route: 042
  17. FOSCARNET SODIUM [Suspect]
     Active Substance: FOSCARNET SODIUM
     Indication: Cytomegalovirus infection reactivation
     Dosage: 2.4 MG, QD (2.4 MG/0.1 ML WAS INITIATED IN THE RIGHT THEN THE LEFT EYE AND REPEATED AT 1-2 WEEK INTE
     Route: 031
  18. FOSCARNET SODIUM [Suspect]
     Active Substance: FOSCARNET SODIUM
     Indication: Cytomegalovirus chorioretinitis
     Dosage: UNK
     Route: 031
  19. METHYLPREDNISOLONE SODIUM SUCCINATE [Suspect]
     Active Substance: METHYLPREDNISOLONE SODIUM SUCCINATE
     Indication: Immunosuppressant drug therapy
     Dosage: UNK
     Route: 042
  20. SIROLIMUS [Suspect]
     Active Substance: SIROLIMUS
     Indication: Antiviral treatment
     Dosage: 1.5 MG, QD
     Route: 065
  21. PREDNISOLONE [Suspect]
     Active Substance: PREDNISOLONE
     Indication: Antiviral treatment
     Dosage: 15 MG, QD
     Route: 065
  22. PREDNISOLONE [Suspect]
     Active Substance: PREDNISOLONE
     Indication: Immunosuppressant drug therapy
     Dosage: 5 MG, QD
     Route: 065
  23. PREDNISOLONE [Suspect]
     Active Substance: PREDNISOLONE
     Dosage: 8 MG, QD (2 MONTHS)
     Route: 065
  24. HUMAN CYTOMEGALOVIRUS IMMUNE GLOBULIN [Suspect]
     Active Substance: HUMAN CYTOMEGALOVIRUS IMMUNE GLOBULIN
     Indication: Cytomegalovirus chorioretinitis
     Dosage: 2 MG/KG, QW FOR 4 WEEKS
     Route: 065
  25. HUMAN CYTOMEGALOVIRUS IMMUNE GLOBULIN [Suspect]
     Active Substance: HUMAN CYTOMEGALOVIRUS IMMUNE GLOBULIN
     Indication: Cytomegalovirus viraemia
     Dosage: 1 UNK, QW
     Route: 065
  26. HUMAN CYTOMEGALOVIRUS IMMUNE GLOBULIN [Suspect]
     Active Substance: HUMAN CYTOMEGALOVIRUS IMMUNE GLOBULIN
     Indication: Cytomegalovirus infection reactivation
     Dosage: 2 MG/KG FOR 4 WEEKS
     Route: 065
  27. LAPINE T-LYMPHOCYTE IMMUNE GLOBULIN [Suspect]
     Active Substance: LAPINE T-LYMPHOCYTE IMMUNE GLOBULIN
     Indication: Immunosuppressant drug therapy
     Dosage: 1.5 MG/KG
     Route: 065
  28. CYTOTEC [Concomitant]
     Active Substance: MISOPROSTOL
     Indication: Cytomegalovirus viraemia
     Dosage: UNK, QW
     Route: 065

REACTIONS (18)
  - Retinal detachment [Recovered/Resolved]
  - Retinal scar [Recovered/Resolved]
  - Visual impairment [Not Recovered/Not Resolved]
  - Cytomegalovirus chorioretinitis [Recovered/Resolved]
  - Product use issue [Recovered/Resolved]
  - Pneumonia cytomegaloviral [Recovered/Resolved]
  - Cytomegalovirus infection reactivation [Recovered/Resolved]
  - Drug resistance [Recovered/Resolved]
  - Renal impairment [Recovered/Resolved]
  - Cytomegalovirus viraemia [Recovered/Resolved]
  - Nephropathy toxic [Recovered/Resolved]
  - Off label use [Unknown]
  - Myelosuppression [Unknown]
  - Pleural effusion [Unknown]
  - Diarrhoea [Recovering/Resolving]
  - Weight decreased [Recovering/Resolving]
  - Flushing [Recovering/Resolving]
  - Skin discolouration [Unknown]
